FAERS Safety Report 23111478 (Version 1)
Quarter: 2023Q4

REPORT INFORMATION
  Report Type: Spontaneous
  Country: US (occurrence: None)
  Receive Date: 20231026
  Receipt Date: 20231026
  Transmission Date: 20240110
  Serious: Yes (Other)
  Sender: FDA-Public Use
  Company Number: 2023A242806

PATIENT

DRUGS (1)
  1. SYMBICORT [Suspect]
     Active Substance: BUDESONIDE\FORMOTEROL FUMARATE DIHYDRATE
     Dosage: UNKNOWN UNKNOWN
     Route: 055

REACTIONS (9)
  - Neoplasm malignant [Unknown]
  - Hypertension [Unknown]
  - Type 2 diabetes mellitus [Unknown]
  - Arthritis [Unknown]
  - Back disorder [Unknown]
  - Bronchitis chronic [Unknown]
  - Migraine [Unknown]
  - Obesity [Unknown]
  - Sleep disorder [Unknown]
